FAERS Safety Report 8356317-1 (Version None)
Quarter: 2012Q2

REPORT INFORMATION
  Report Type: 
  Country: None (occurrence: None)
  Receive Date: 20120514
  Receipt Date: 20120510
  Transmission Date: 20120825
  Serious: Yes (Hospitalization)
  Sender: FDA-Public Use
  Company Number: DE-AMGEN-DEUCT2012016705

PATIENT
  Age: 55 Year
  Sex: Female

DRUGS (6)
  1. FOLISANIN [Concomitant]
     Indication: PREMEDICATION
     Dosage: UNK
     Dates: start: 20110330, end: 20110420
  2. VERGENTAN [Concomitant]
     Dosage: UNK
     Route: 048
     Dates: start: 20110406
  3. DEXAMETHASONE [Concomitant]
     Indication: PREMEDICATION
     Dosage: UNK
     Dates: start: 20110330, end: 20110420
  4. PANITUMUMAB [Suspect]
     Indication: NON-SMALL CELL LUNG CANCER
     Dosage: 9 MG/KG, UNK
     Route: 042
     Dates: start: 20110330, end: 20110330
  5. PEMETREXED [Concomitant]
     Indication: NON-SMALL CELL LUNG CANCER
     Dosage: 500 MG/M2, UNK
     Route: 042
     Dates: start: 20110330, end: 20110420
  6. CISPLATIN [Concomitant]
     Indication: NON-SMALL CELL LUNG CANCER
     Dosage: 75 MG/M2, UNK
     Route: 042
     Dates: start: 20110330, end: 20110420

REACTIONS (1)
  - RASH [None]
